FAERS Safety Report 5118147-3 (Version None)
Quarter: 2006Q4

REPORT INFORMATION
  Report Type: 
  Country: None (occurrence: None)
  Receive Date: 20061002
  Receipt Date: 20060920
  Transmission Date: 20070319
  Serious: Yes (Hospitalization)
  Sender: FDA-Public Use
  Company Number: FR-JNJFOC-20060805454

PATIENT
  Age: 60 Year
  Sex: Male

DRUGS (1)
  1. OFLOCET [Suspect]
     Indication: GASTROENTERITIS SALMONELLA
     Route: 048
     Dates: start: 20060817, end: 20060821

REACTIONS (1)
  - MILLER FISHER SYNDROME [None]
